FAERS Safety Report 4612883-0 (Version None)
Quarter: 2005Q1

REPORT INFORMATION
  Report Type: 
  Country: None (occurrence: None)
  Receive Date: 20050318
  Receipt Date: 20050125
  Transmission Date: 20050727
  Serious: No
  Sender: FDA-Public Use
  Company Number: PHBS2005JP01331

PATIENT
  Age: 12 Year
  Sex: Female

DRUGS (6)
  1. TEGRETOL [Suspect]
     Indication: EPILEPSY
     Dosage: 45 MG, BID
     Route: 048
     Dates: start: 20041106, end: 20041108
  2. TEGRETOL [Suspect]
     Dosage: 90 MG, BID
     Route: 048
     Dates: start: 20041109, end: 20041111
  3. TEGRETOL [Suspect]
     Dosage: 75 MG, BID
     Route: 048
     Dates: start: 20041112, end: 20041123
  4. TEGRETOL [Suspect]
     Dosage: 90 MG, BID
     Route: 048
     Dates: start: 20041124, end: 20041209
  5. TEGRETOL [Suspect]
     Dosage: 105 MG, BID
     Route: 048
     Dates: start: 20041210, end: 20050111
  6. TEGRETOL [Suspect]
     Dosage: 250 MG/DAY
     Route: 048
     Dates: start: 20050112, end: 20050120

REACTIONS (2)
  - CONVULSION [None]
  - RASH PRURITIC [None]
